FAERS Safety Report 5705642-9 (Version None)
Quarter: 2008Q2

REPORT INFORMATION
  Report Type: 
  Country: None (occurrence: None)
  Receive Date: 20080415
  Receipt Date: 20080404
  Transmission Date: 20081010
  Serious: Yes (Hospitalization)
  Sender: FDA-Public Use
  Company Number: DE-TEVA-169637ISR

PATIENT
  Sex: Female

DRUGS (2)
  1. FLUOROURACIL [Suspect]
  2. FLUOROURACIL [Suspect]

REACTIONS (3)
  - ABDOMINAL PAIN [None]
  - CHILLS [None]
  - NAUSEA [None]
